FAERS Safety Report 9226612 (Version 1)
Quarter: 2013Q2

REPORT INFORMATION
  Report Type: Spontaneous
  Country: DE (occurrence: DE)
  Receive Date: 20130412
  Receipt Date: 20130412
  Transmission Date: 20140414
  Serious: Yes (Life-Threatening, Hospitalization)
  Sender: FDA-Public Use
  Company Number: DE-BIOGENIDEC-2013BI032624

PATIENT
  Age: 38 Year
  Sex: Female
  Weight: 64 kg

DRUGS (3)
  1. AVONEX [Suspect]
     Indication: MULTIPLE SCLEROSIS
     Route: 030
     Dates: start: 20090813, end: 20130318
  2. AMLODIPINE [Concomitant]
     Indication: HYPERTENSION
     Dates: start: 2003
  3. METOHEXAL [Concomitant]
     Indication: HYPERTENSION
     Dates: start: 2003

REACTIONS (3)
  - Myocardial infarction [Recovered/Resolved]
  - Coma [Recovered/Resolved]
  - Rib fracture [Recovered/Resolved]
